FAERS Safety Report 13872163 (Version 1)
Quarter: 2017Q3

REPORT INFORMATION
  Report Type: Spontaneous
  Country: BB (occurrence: BB)
  Receive Date: 20170814
  Receipt Date: 20170814
  Transmission Date: 20171127
  Serious: No
  Sender: FDA-Public Use
  Company Number: None

PATIENT
  Age: 39 Year
  Sex: Female
  Weight: 76.5 kg

DRUGS (1)
  1. ORTHO EVRA [Suspect]
     Active Substance: ETHINYL ESTRADIOL\NORELGESTROMIN
     Route: 061

REACTIONS (7)
  - Arthralgia [None]
  - Back pain [None]
  - Sleep disorder [None]
  - Discomfort [None]
  - Burning sensation [None]
  - Joint range of motion decreased [None]
  - Musculoskeletal stiffness [None]
